FAERS Safety Report 13093989 (Version 1)
Quarter: 2017Q1

REPORT INFORMATION
  Report Type: Spontaneous
  Country: US (occurrence: US)
  Receive Date: 20170106
  Receipt Date: 20170106
  Transmission Date: 20170428
  Serious: No
  Sender: FDA-Public Use
  Company Number: US-G+W LABS-GW2016US000228

PATIENT

DRUGS (5)
  1. MOMETASONE FUROATE. [Suspect]
     Active Substance: MOMETASONE FUROATE
     Indication: PSORIASIS
  2. MOMETASONE FUROATE. [Suspect]
     Active Substance: MOMETASONE FUROATE
     Indication: SKIN EXFOLIATION
  3. LINZESS [Concomitant]
     Active Substance: LINACLOTIDE
     Indication: CONSTIPATION
     Dosage: 145 MCG
  4. MOMETASONE FUROATE. [Suspect]
     Active Substance: MOMETASONE FUROATE
     Indication: DRY SKIN
     Dosage: 0.1 %, 1 DROP IN EACH EAR 3X/WEEK AT BEDTIME
     Route: 050
     Dates: start: 201612
  5. LINZESS [Concomitant]
     Active Substance: LINACLOTIDE
     Dosage: 290 MCG

REACTIONS (5)
  - Incorrect route of drug administration [Not Recovered/Not Resolved]
  - Off label use [Not Recovered/Not Resolved]
  - Erythema [Recovered/Resolved]
  - Inflammation [Recovered/Resolved]
  - Ear discomfort [Recovered/Resolved]
